FAERS Safety Report 5189647-5 (Version None)
Quarter: 2006Q4

REPORT INFORMATION
  Report Type: 
  Country: None (occurrence: None)
  Receive Date: 20061221
  Receipt Date: 20060210
  Transmission Date: 20070319
  Serious: No
  Sender: FDA-Public Use
  Company Number: US-AMGEN-US168508

PATIENT
  Sex: Female

DRUGS (14)
  1. ENBREL [Suspect]
     Indication: RHEUMATOID ARTHRITIS
     Route: 058
     Dates: start: 20010101
  2. NEXIUM [Concomitant]
     Route: 065
  3. REGLAN [Concomitant]
     Route: 065
  4. DETROL [Concomitant]
     Route: 065
  5. FOLIC ACID [Concomitant]
     Route: 065
  6. METHOTREXATE [Concomitant]
     Route: 065
  7. PIROXICAM [Concomitant]
     Route: 065
  8. PLAQUENIL [Concomitant]
     Route: 065
  9. XANAX [Concomitant]
     Route: 065
  10. ENALAPRIL MALEATE [Concomitant]
     Route: 065
  11. NORVASC [Concomitant]
     Route: 065
  12. FUROSEMIDE INTENSOL [Concomitant]
     Route: 065
  13. INDERAL LA [Concomitant]
     Route: 065
  14. ELAVIL [Concomitant]
     Route: 065

REACTIONS (4)
  - ABDOMINAL PAIN [None]
  - CHEST PAIN [None]
  - DIARRHOEA HAEMORRHAGIC [None]
  - MALAISE [None]
